FAERS Safety Report 18566837 (Version 1)
Quarter: 2020Q4

REPORT INFORMATION
  Report Type: Report from Study
  Country: US (occurrence: US)
  Receive Date: 20201201
  Receipt Date: 20201201
  Transmission Date: 20210114
  Serious: No
  Sender: FDA-Public Use
  Company Number: US-DOVA PHARMACEUTICALS INC.-DOV-000650

PATIENT
  Sex: Male

DRUGS (2)
  1. DOPTELET [Suspect]
     Active Substance: AVATROMBOPAG MALEATE
     Indication: HEART VALVE REPLACEMENT
     Dosage: 60 MG, QD
     Route: 048
     Dates: start: 202008, end: 202008
  2. DOPTELET [Suspect]
     Active Substance: AVATROMBOPAG MALEATE
     Indication: DENTAL OPERATION
     Dosage: 60 MG, QD
     Dates: start: 202009

REACTIONS (2)
  - Drug effect less than expected [Unknown]
  - Product prescribing issue [Unknown]
